FAERS Safety Report 7064982-4 (Version None)
Quarter: 2010Q4

REPORT INFORMATION
  Report Type: 
  Country: None (occurrence: None)
  Receive Date: 20101027
  Receipt Date: 20101014
  Transmission Date: 20110411
  Serious: Yes (Other)
  Sender: FDA-Public Use
  Company Number: US-ACTELION-A-US2010-37306

PATIENT
  Sex: Female

DRUGS (16)
  1. BOSENTAN TABLET 125 MG US [Suspect]
     Indication: PULMONARY ARTERIAL HYPERTENSION
     Dosage: 125
     Route: 048
     Dates: start: 20100407, end: 20100524
  2. BOSENTAN TABLET 125 MG US [Suspect]
     Dosage: UNK
     Route: 048
  3. REVATIO [Concomitant]
  4. COUMADIN [Concomitant]
  5. REMODULIN [Concomitant]
  6. OMEPRAZOLE [Concomitant]
  7. MAGNESIUM [Concomitant]
  8. LASIX [Concomitant]
  9. POTASSIUM CHLORIDE [Concomitant]
  10. FERROUS SULFATE [Concomitant]
  11. GABAPENTIN [Concomitant]
  12. COLACE [Concomitant]
  13. ASCORBIC ACID [Concomitant]
  14. ULTRAM [Concomitant]
  15. LEVONORGESTREL [Concomitant]
  16. CELEXA [Concomitant]

REACTIONS (5)
  - ABORTION INDUCED [None]
  - ANAEMIA [None]
  - CONDITION AGGRAVATED [None]
  - OEDEMA PERIPHERAL [None]
  - PREGNANCY [None]
